FAERS Safety Report 10557203 (Version 1)
Quarter: 2014Q4

REPORT INFORMATION
  Report Type: Report from Study
  Country: AT (occurrence: AT)
  Receive Date: 20141031
  Receipt Date: 20141031
  Transmission Date: 20150529
  Serious: Yes (Other)
  Sender: FDA-Public Use
  Company Number: AT-BAYER-2014-154712

PATIENT

DRUGS (1)
  1. SORAFENIB (RAF KINASE INHIBITOR) [Suspect]
     Active Substance: SORAFENIB
     Indication: METASTATIC RENAL CELL CARCINOMA
     Dosage: 800 MG DAILY DOSE

REACTIONS (3)
  - Cardiotoxicity [Recovered/Resolved]
  - Electrocardiogram change [Recovered/Resolved]
  - Blood creatine phosphokinase MB increased [Recovered/Resolved]
